FAERS Safety Report 16040732 (Version 1)
Quarter: 2019Q1

REPORT INFORMATION
  Report Type: Spontaneous
  Country: US (occurrence: US)
  Receive Date: 20190306
  Receipt Date: 20190306
  Transmission Date: 20190418
  Serious: No
  Sender: FDA-Public Use
  Company Number: US-VIVIMED-2018SP004357

PATIENT

DRUGS (2)
  1. METRONIDAZOLE. [Suspect]
     Active Substance: METRONIDAZOLE
     Indication: PRODUCT USED FOR UNKNOWN INDICATION
     Dosage: UNK
     Route: 065
  2. METRONIDAZOLE. [Suspect]
     Active Substance: METRONIDAZOLE
     Dosage: 2 G, UNKNOWN
     Route: 048

REACTIONS (7)
  - Rash pustular [Recovered/Resolved]
  - Dermatitis bullous [Recovered/Resolved]
  - Urticaria [Recovered/Resolved]
  - Fixed eruption [Recovered/Resolved]
  - Rash papular [Recovered/Resolved]
  - Rash [Recovered/Resolved]
  - Rash pruritic [Recovered/Resolved]
